FAERS Safety Report 9628982 (Version 2)
Quarter: 2013Q4

REPORT INFORMATION
  Report Type: Report from Study
  Country: CO (occurrence: CO)
  Receive Date: 20131017
  Receipt Date: 20131024
  Transmission Date: 20140711
  Serious: Yes (Other)
  Sender: FDA-Public Use
  Company Number: CO-ROCHE-1289832

PATIENT
  Sex: Female
  Weight: 63 kg

DRUGS (5)
  1. RANIBIZUMAB [Suspect]
     Indication: RETINAL DISORDER
     Dosage: IN BOTH EYES
     Route: 050
     Dates: end: 2012
  2. RANIBIZUMAB [Suspect]
     Indication: MACULAR DEGENERATION
  3. ENALAPRIL [Concomitant]
     Indication: HYPERTENSION
  4. GLIBENCLAMIDE [Concomitant]
     Indication: DIABETES MELLITUS
  5. PREGABALIN [Concomitant]
     Route: 048

REACTIONS (3)
  - Panic attack [Recovered/Resolved]
  - Fear of injection [Recovering/Resolving]
  - Nervousness [Recovering/Resolving]
